FAERS Safety Report 23054733 (Version 3)
Quarter: 2023Q4

REPORT INFORMATION
  Report Type: Spontaneous
  Country: ES (occurrence: ES)
  Receive Date: 20231011
  Receipt Date: 20231113
  Transmission Date: 20240110
  Serious: Yes (Death, Other)
  Sender: FDA-Public Use
  Company Number: ES-BAYER-2023A141031

PATIENT
  Age: 14 Year
  Sex: Male

DRUGS (3)
  1. STIVARGA [Suspect]
     Active Substance: REGORAFENIB
     Indication: Ewing^s sarcoma metastatic
     Dosage: UNK
     Dates: start: 20230306, end: 20230417
  2. OLAPARIB [Concomitant]
     Active Substance: OLAPARIB
     Dosage: UNK
     Dates: start: 20230614
  3. CERALASERTIB [Concomitant]
     Active Substance: CERALASERTIB
     Dosage: UNK
     Dates: start: 20230614

REACTIONS (5)
  - Ewing^s sarcoma metastatic [Fatal]
  - Metastases to lung [None]
  - Off label use [None]
  - Diarrhoea [None]
  - Decreased appetite [None]
